FAERS Safety Report 14298918 (Version 1)
Quarter: 2017Q4

REPORT INFORMATION
  Report Type: Spontaneous
  Country: US (occurrence: US)
  Receive Date: 20171216
  Receipt Date: 20171216
  Transmission Date: 20180321
  Serious: Yes (Life-Threatening, Hospitalization, Other)
  Sender: FDA-Public Use
  Company Number: None

PATIENT
  Sex: Female
  Weight: 135 kg

DRUGS (8)
  1. PRILOSEC [Concomitant]
     Active Substance: OMEPRAZOLE MAGNESIUM
  2. CAMILA [Concomitant]
     Active Substance: NORETHINDRONE
  3. TOPAMAX [Concomitant]
     Active Substance: TOPIRAMATE
  4. TRILEPTAL [Concomitant]
     Active Substance: OXCARBAZEPINE
  5. CLONIDINE. [Concomitant]
     Active Substance: CLONIDINE
  6. LATUDA [Suspect]
     Active Substance: LURASIDONE HYDROCHLORIDE
     Indication: DEPRESSION
     Dosage: ?          QUANTITY:30 TABLET(S);?
     Route: 048
     Dates: start: 20171107, end: 20171123
  7. ALBUTEROL. [Concomitant]
     Active Substance: ALBUTEROL
  8. LYRICA [Concomitant]
     Active Substance: PREGABALIN

REACTIONS (2)
  - Rash [None]
  - Pharyngeal oedema [None]
